FAERS Safety Report 18523707 (Version 1)
Quarter: 2020Q4

REPORT INFORMATION
  Report Type: Report from Study
  Country: CO (occurrence: CO)
  Receive Date: 20201119
  Receipt Date: 20201119
  Transmission Date: 20210114
  Serious: Yes (Hospitalization, Other)
  Sender: FDA-Public Use
  Company Number: CO-BAYER-2019-019769

PATIENT
  Age: 60 Year
  Sex: Female

DRUGS (7)
  1. ROSUVASTATIN. [Concomitant]
     Active Substance: ROSUVASTATIN
     Dosage: UNK
  2. VITAMIN B3 [Concomitant]
     Active Substance: NIACIN
     Dosage: UNK
  3. NEXAVAR [Suspect]
     Active Substance: SORAFENIB
     Indication: POORLY DIFFERENTIATED THYROID CARCINOMA
     Dosage: 200 MG, BID
     Dates: start: 20181117
  4. ACETAMINOPHEN. [Concomitant]
     Active Substance: ACETAMINOPHEN
     Dosage: UNK
  5. LEVOTHYROXINE. [Concomitant]
     Active Substance: LEVOTHYROXINE
     Indication: HYPERTHYROIDISM
     Dosage: UNK
  6. NEXAVAR [Suspect]
     Active Substance: SORAFENIB
     Indication: RADIOACTIVE IODINE THERAPY
  7. CALCIUM [Concomitant]
     Active Substance: CALCIUM
     Dosage: UNK

REACTIONS (35)
  - Eye haemorrhage [None]
  - Tongue exfoliation [Unknown]
  - Dyspnoea [None]
  - Anxiety [Recovering/Resolving]
  - Dysphonia [Not Recovered/Not Resolved]
  - Visual impairment [Unknown]
  - Haemorrhage [None]
  - Headache [Not Recovered/Not Resolved]
  - Diarrhoea [Recovering/Resolving]
  - Off label use [Not Recovered/Not Resolved]
  - Ageusia [Unknown]
  - Tongue geographic [None]
  - Fatigue [Not Recovered/Not Resolved]
  - Hypertension [Recovering/Resolving]
  - Hypertension [None]
  - Gastroenteritis viral [Recovering/Resolving]
  - Burning sensation [Unknown]
  - Alopecia [Not Recovered/Not Resolved]
  - Hordeolum [Recovered/Resolved]
  - Pain [Unknown]
  - Pain of skin [Not Recovered/Not Resolved]
  - Vomiting [Recovering/Resolving]
  - Skin atrophy [None]
  - Hyperaesthesia teeth [None]
  - Gingival bleeding [Unknown]
  - Retinal vascular thrombosis [Unknown]
  - Arthralgia [Not Recovered/Not Resolved]
  - Hypothyroidism [Recovering/Resolving]
  - Influenza [Not Recovered/Not Resolved]
  - Genital abscess [Not Recovered/Not Resolved]
  - Vascular rupture [None]
  - Headache [None]
  - Back pain [None]
  - Fatigue [Not Recovered/Not Resolved]
  - Tremor [Recovering/Resolving]

NARRATIVE: CASE EVENT DATE: 201811
